FAERS Safety Report 7782956-2 (Version None)
Quarter: 2011Q3

REPORT INFORMATION
  Report Type: 
  Country: None (occurrence: None)
  Receive Date: 20110926
  Receipt Date: 20110919
  Transmission Date: 20111222
  Serious: Yes (Congenital Anomaly)
  Sender: FDA-Public Use
  Company Number: 1000024030

PATIENT
  Sex: Male

DRUGS (1)
  1. LEXAPRO [Suspect]
     Dosage: 10 MG (10 MG), TRANSPLACENTAL
     Dates: end: 20071205

REACTIONS (4)
  - MENTAL RETARDATION [None]
  - AORTIC VALVE DISEASE [None]
  - BICUSPID AORTIC VALVE [None]
  - MATERNAL DRUGS AFFECTING FOETUS [None]
